FAERS Safety Report 13987537 (Version 1)
Quarter: 2017Q3

REPORT INFORMATION
  Report Type: Spontaneous
  Country: US (occurrence: None)
  Receive Date: 20170919
  Receipt Date: 20170919
  Transmission Date: 20171128
  Serious: Yes (Other)
  Sender: FDA-Public Use
  Company Number: None

PATIENT
  Age: 66 Year
  Sex: Female
  Weight: 99.79 kg

DRUGS (3)
  1. BENZTROPINE 1MG TABLETS N/10 [Suspect]
     Active Substance: BENZTROPINE MESYLATE
     Indication: MENTAL DISORDER
     Dosage: DOSE - 60 TABLETS/TAKE 2 PER DAY?FREQUENCY - TEICE DAILY - 1 DAYTIME, 1 NIGHT?
     Route: 048
     Dates: start: 20160810, end: 20170815
  2. HYDROXYZINE [Concomitant]
     Active Substance: HYDROXYZINE HYDROCHLORIDE
  3. RISPERIDONE. [Concomitant]
     Active Substance: RISPERIDONE

REACTIONS (3)
  - Angina pectoris [None]
  - Product substitution [None]
  - Headache [None]

NARRATIVE: CASE EVENT DATE: 20170809
